FAERS Safety Report 23863661 (Version 1)
Quarter: 2024Q2

REPORT INFORMATION
  Report Type: Report from Study
  Country: CA (occurrence: CA)
  Receive Date: 20240516
  Receipt Date: 20240516
  Transmission Date: 20240716
  Serious: Yes (Other)
  Sender: FDA-Public Use
  Company Number: CA-SAMSUNG BIOEPIS-SB-2024-13350

PATIENT
  Age: 20 Year
  Sex: Male

DRUGS (8)
  1. RENFLEXIS [Suspect]
     Active Substance: INFLIXIMAB-ABDA
     Indication: Colitis ulcerative
     Dosage: 100 MG VIAL
     Route: 065
     Dates: start: 20210515
  2. METHOTREXATE [Concomitant]
     Active Substance: METHOTREXATE
     Indication: Product used for unknown indication
     Route: 048
  3. FOLIC ACID [Concomitant]
     Active Substance: FOLIC ACID
     Indication: Product used for unknown indication
     Dosage: 3X PER WEEK
     Route: 065
  4. DEXEDRINE [Concomitant]
     Active Substance: DEXTROAMPHETAMINE SULFATE
     Indication: Attention deficit hyperactivity disorder
     Route: 065
  5. INTUNIV [Concomitant]
     Active Substance: GUANFACINE HYDROCHLORIDE
     Indication: Attention deficit hyperactivity disorder
     Route: 048
  6. FLUOXETINE [Concomitant]
     Active Substance: FLUOXETINE HYDROCHLORIDE
     Indication: Anxiety
     Route: 048
  7. MIRTAZAPINE [Concomitant]
     Active Substance: MIRTAZAPINE
     Indication: Depression
     Route: 065
  8. MIRTAZAPINE [Concomitant]
     Active Substance: MIRTAZAPINE
     Indication: Sleep disorder

REACTIONS (2)
  - Haematochezia [Unknown]
  - Off label use [Unknown]

NARRATIVE: CASE EVENT DATE: 20240425
